FAERS Safety Report 8404840-3 (Version None)
Quarter: 2012Q2

REPORT INFORMATION
  Report Type: 
  Country: None (occurrence: None)
  Receive Date: 20120601
  Receipt Date: 20120525
  Transmission Date: 20120825
  Serious: Yes (Other)
  Sender: FDA-Public Use
  Company Number: US-ASTRAZENECA-2012SE24314

PATIENT
  Age: 47 Year
  Sex: Male

DRUGS (7)
  1. PRILOSEC OTC [Suspect]
     Route: 048
  2. NEXIUM [Suspect]
     Indication: GASTROOESOPHAGEAL REFLUX DISEASE
     Dosage: TWO TIMES A DAY
     Route: 048
  3. NEXIUM [Suspect]
     Indication: GASTRIC PERFORATION
     Dosage: TWO TIMES A DAY
     Route: 048
  4. NEXIUM [Suspect]
     Route: 048
  5. NEXIUM [Suspect]
     Route: 048
  6. LACTULOSE [Concomitant]
     Indication: LAXATIVE SUPPORTIVE CARE
  7. PREVACID [Concomitant]

REACTIONS (7)
  - THERAPEUTIC RESPONSE UNEXPECTED [None]
  - MALAISE [None]
  - VOMITING [None]
  - BONE PAIN [None]
  - GASTROOESOPHAGEAL REFLUX DISEASE [None]
  - HEPATIC FUNCTION ABNORMAL [None]
  - DRUG INEFFECTIVE [None]
